FAERS Safety Report 24697176 (Version 3)
Quarter: 2025Q1

REPORT INFORMATION
  Report Type: Spontaneous
  Country: ES (occurrence: ES)
  Receive Date: 20241204
  Receipt Date: 20250123
  Transmission Date: 20250409
  Serious: Yes (Hospitalization)
  Sender: PFIZER
  Company Number: ES-ROCHE-10000137783

PATIENT
  Age: 47 Year
  Sex: Female
  Weight: 93 kg

DRUGS (16)
  1. TRASTUZUMAB [Suspect]
     Active Substance: TRASTUZUMAB
     Indication: HER2 positive breast cancer
     Dosage: 498 MG, EVERY 3 WEEKS
     Route: 042
     Dates: start: 20240628, end: 20240708
  2. TRASTUZUMAB [Suspect]
     Active Substance: TRASTUZUMAB
  3. EPIRUBICIN HYDROCHLORIDE [Suspect]
     Active Substance: EPIRUBICIN HYDROCHLORIDE
     Indication: HER2 positive breast cancer
     Dosage: 189 MG, EVERY 3 WEEKS
     Route: 042
     Dates: start: 20240628, end: 20240708
  4. EPIRUBICIN HYDROCHLORIDE [Suspect]
     Active Substance: EPIRUBICIN HYDROCHLORIDE
  5. PLACEBO [Suspect]
     Active Substance: PLACEBO
     Indication: HER2 positive breast cancer
     Dosage: UNK, EVERY 3 WEEKS
     Route: 042
     Dates: start: 20130307, end: 20240205
  6. PLACEBO [Suspect]
     Active Substance: PLACEBO
  7. CYCLOPHOSPHAMIDE [Suspect]
     Active Substance: CYCLOPHOSPHAMIDE
     Indication: HER2 positive breast cancer
     Dosage: 945 MG, EVERY 3 WEEKS
     Route: 042
     Dates: start: 20240628, end: 20240708
  8. CYCLOPHOSPHAMIDE [Suspect]
     Active Substance: CYCLOPHOSPHAMIDE
  9. APIXABAN [Concomitant]
     Active Substance: APIXABAN
     Dosage: 5 MG, 1X/DAY
     Dates: start: 20220322
  10. BISOPROLOL [Concomitant]
     Active Substance: BISOPROLOL
  11. FUROSEMIDE [Concomitant]
     Active Substance: FUROSEMIDE
  12. DAPAGLIFLOZIN [Concomitant]
     Active Substance: DAPAGLIFLOZIN
     Dates: start: 20220315
  13. SACUBITRIL [Concomitant]
     Active Substance: SACUBITRIL
  14. VALSARTAN [Concomitant]
     Active Substance: VALSARTAN
  15. OMEPRAZOL A [Concomitant]
  16. IRON [Concomitant]
     Active Substance: IRON

REACTIONS (3)
  - Cardiac failure [Recovered/Resolved with Sequelae]
  - Mitral valve incompetence [Recovered/Resolved with Sequelae]
  - Cardiac failure [Recovered/Resolved with Sequelae]

NARRATIVE: CASE EVENT DATE: 20240622
